FAERS Safety Report 25463879 (Version 1)
Quarter: 2025Q2

REPORT INFORMATION
  Report Type: Report from Study
  Country: CA (occurrence: CA)
  Receive Date: 20250621
  Receipt Date: 20250621
  Transmission Date: 20250717
  Serious: Yes (Other)
  Sender: ALEXION PHARMACEUTICALS
  Company Number: CA-AstraZeneca-CH-00882465A

PATIENT
  Age: 61 Year

DRUGS (1)
  1. DURVALUMAB [Suspect]
     Active Substance: DURVALUMAB
     Indication: Small cell lung cancer limited stage
     Dosage: 1500 MILLIGRAM, Q4W

REACTIONS (4)
  - Clostridium difficile infection [Unknown]
  - Inappropriate schedule of product administration [Not Recovered/Not Resolved]
  - Gastrointestinal infection [Unknown]
  - Blastocystis infection [Unknown]
